FAERS Safety Report 16822610 (Version 1)
Quarter: 2019Q3

REPORT INFORMATION
  Report Type: Spontaneous
  Country: US (occurrence: US)
  Receive Date: 20190918
  Receipt Date: 20190918
  Transmission Date: 20191005
  Serious: No
  Sender: FDA-Public Use
  Company Number: US-PFIZER INC-2019401973

PATIENT
  Age: 46 Year
  Sex: Female

DRUGS (1)
  1. ZOLOFT [Suspect]
     Active Substance: SERTRALINE HYDROCHLORIDE
     Dosage: UNK (1/2 DOSE FOR FIRST WEEK)

REACTIONS (4)
  - Headache [Unknown]
  - Fatigue [Unknown]
  - Dizziness [Unknown]
  - Nausea [Unknown]
